FAERS Safety Report 13107983 (Version 1)
Quarter: 2017Q1

REPORT INFORMATION
  Report Type: Spontaneous
  Country: US (occurrence: US)
  Receive Date: 20170112
  Receipt Date: 20170112
  Transmission Date: 20170428
  Serious: No
  Sender: FDA-Public Use
  Company Number: US-AMGEN-USASP2017003382

PATIENT
  Age: 56 Year
  Sex: Female

DRUGS (3)
  1. METHOTREXATE. [Concomitant]
     Active Substance: METHOTREXATE
     Indication: HYPERTENSION
     Dosage: UNK
  2. METHOTREXATE. [Concomitant]
     Active Substance: METHOTREXATE
     Indication: BLOOD CHOLESTEROL
  3. ENBREL [Suspect]
     Active Substance: ETANERCEPT
     Indication: SPONDYLOARTHROPATHY
     Dosage: UNK, QWK
     Route: 065
     Dates: start: 201611

REACTIONS (2)
  - Nasopharyngitis [Unknown]
  - Off label use [Unknown]

NARRATIVE: CASE EVENT DATE: 201611
